FAERS Safety Report 7585338-1 (Version None)
Quarter: 2011Q2

REPORT INFORMATION
  Report Type: 
  Country: None (occurrence: None)
  Receive Date: 20110628
  Receipt Date: 20110628
  Transmission Date: 20111010
  Serious: Yes (Life-Threatening, Hospitalization, Disabling, Other)
  Sender: FDA-Public Use
  Company Number: None

PATIENT
  Age: 79 Year
  Sex: Female
  Weight: 58.0604 kg

DRUGS (1)
  1. CIPROFLOXACIN HCL [Suspect]
     Indication: URINARY TRACT INFECTION
     Dosage: 500MG 2X DAILY PO
     Route: 048
     Dates: start: 20110413, end: 20110418

REACTIONS (7)
  - ARTHRALGIA [None]
  - TENDON RUPTURE [None]
  - JOINT SWELLING [None]
  - DISCOMFORT [None]
  - MOVEMENT DISORDER [None]
  - CONTUSION [None]
  - JOINT STIFFNESS [None]
